FAERS Safety Report 17209827 (Version 1)
Quarter: 2019Q4

REPORT INFORMATION
  Report Type: Spontaneous
  Country: US (occurrence: US)
  Receive Date: 20191227
  Receipt Date: 20191227
  Transmission Date: 20200122
  Serious: No
  Sender: FDA-Public Use
  Company Number: US-SA-2019SA356960

PATIENT
  Age: 79 Year
  Sex: Female
  Weight: 54 kg

DRUGS (2)
  1. PLAVIX [Suspect]
     Active Substance: CLOPIDOGREL BISULFATE
     Indication: BLOOD PRESSURE MEASUREMENT
     Dosage: 75 MG, QD (EVERY NIGHT)
     Route: 048
     Dates: start: 20190928
  2. PLAVIX [Suspect]
     Active Substance: CLOPIDOGREL BISULFATE
     Indication: MUSCULAR WEAKNESS

REACTIONS (3)
  - Stress [Unknown]
  - Gait inability [Unknown]
  - Asthenia [Unknown]
